FAERS Safety Report 8493821-X (Version None)
Quarter: 2012Q3

REPORT INFORMATION
  Report Type: 
  Country: None (occurrence: None)
  Receive Date: 20120706
  Receipt Date: 20120626
  Transmission Date: 20120928
  Serious: Yes (Other)
  Sender: FDA-Public Use
  Company Number: PT-BAXTER-2012BAX008786

PATIENT
  Sex: Female
  Weight: 58 kg

DRUGS (11)
  1. CARVEDILOL [Concomitant]
  2. HEPARIN [Concomitant]
     Indication: PROPHYLAXIS
     Route: 033
  3. CINACALCET HYDROCHLORIDE [Concomitant]
  4. ALUMINUM HYDROXIDE GEL [Concomitant]
     Dosage: 4 TABLETS
  5. INSULIN [Concomitant]
  6. PHYSIONEAL 40 GLUCOSE 2,27% P/V / 22,7 MG/ML [Suspect]
     Route: 033
  7. ARANESP [Concomitant]
  8. EXTRANEAL [Suspect]
  9. CLONIDINE [Concomitant]
  10. NIFEDIPINE [Concomitant]
     Dosage: 2
  11. GESTODENE AND ETHINYL ESTRADIOL [Concomitant]

REACTIONS (1)
  - BLOODY PERITONEAL EFFLUENT [None]
